FAERS Safety Report 5892062-X (Version None)
Quarter: 2008Q3

REPORT INFORMATION
  Report Type: 
  Country: None (occurrence: None)
  Receive Date: 20080922
  Receipt Date: 20080825
  Transmission Date: 20090109
  Serious: No
  Sender: FDA-Public Use
  Company Number: US-B.I. PHARMACEUTICALS,INC./RIDGEFIELD-2008-BP-14483BP

PATIENT
  Sex: Male

DRUGS (6)
  1. MIRAPEX [Suspect]
     Indication: PARKINSON'S DISEASE
     Dates: start: 19980316, end: 20070726
  2. PARLODEL [Concomitant]
  3. AZILECT [Concomitant]
  4. SINEMET [Concomitant]
  5. AMANTADINE [Concomitant]
  6. COMTAN [Concomitant]

REACTIONS (2)
  - PAIN [None]
  - PATHOLOGICAL GAMBLING [None]
